FAERS Safety Report 9753688 (Version 1)
Quarter: 2013Q4

REPORT INFORMATION
  Report Type: Spontaneous
  Country: US (occurrence: US)
  Receive Date: 20131213
  Receipt Date: 20131213
  Transmission Date: 20140711
  Serious: Yes (Hospitalization)
  Sender: FDA-Public Use
  Company Number: US-GILEAD-2009-0026028

PATIENT
  Sex: Male
  Weight: 81.65 kg

DRUGS (8)
  1. LETAIRIS [Suspect]
     Indication: PULMONARY ARTERIAL HYPERTENSION
     Route: 048
     Dates: start: 20080619, end: 20091214
  2. LISINOPRIL [Concomitant]
  3. WARFARIN [Concomitant]
  4. DIGOXIN [Concomitant]
  5. FUROSEMIDE [Concomitant]
  6. ZOCOR [Concomitant]
  7. OXYGEN [Concomitant]
  8. MAGNESIUM OXIDE [Concomitant]

REACTIONS (1)
  - Fluid retention [Unknown]
